FAERS Safety Report 9563592 (Version 1)
Quarter: 2013Q3

REPORT INFORMATION
  Report Type: Spontaneous
  Country: US (occurrence: None)
  Receive Date: 20130926
  Receipt Date: 20130926
  Transmission Date: 20140515
  Serious: No
  Sender: FDA-Public Use
  Company Number: None

PATIENT
  Age: 69 Year
  Sex: Male
  Weight: 76.2 kg

DRUGS (1)
  1. DABIGATRAN [Suspect]
     Route: 048
     Dates: start: 20120807, end: 20120918

REACTIONS (4)
  - Abdominal discomfort [None]
  - Gastrooesophageal reflux disease [None]
  - Flatulence [None]
  - Drug intolerance [None]
